FAERS Safety Report 5336221-3 (Version None)
Quarter: 2007Q2

REPORT INFORMATION
  Report Type: 
  Country: None (occurrence: None)
  Receive Date: 20070315
  Receipt Date: 20061214
  Transmission Date: 20071010
  Serious: No
  Sender: FDA-Public Use
  Company Number: BDI-008952

PATIENT
  Age: 41 Year
  Sex: Female

DRUGS (2)
  1. MULTIHANCE [Suspect]
     Indication: CYST
     Dosage: 20 ML ONCE IV
     Route: 042
     Dates: start: 20061212, end: 20061212
  2. MULTIHANCE [Suspect]
     Indication: NUCLEAR MAGNETIC RESONANCE IMAGING ABDOMINAL
     Dosage: 20 ML ONCE IV
     Route: 042
     Dates: start: 20061212, end: 20061212

REACTIONS (1)
  - URTICARIA [None]
